FAERS Safety Report 6865756-7 (Version None)
Quarter: 2010Q3

REPORT INFORMATION
  Report Type: 
  Country: None (occurrence: None)
  Receive Date: 20100721
  Receipt Date: 20080716
  Transmission Date: 20110219
  Serious: No
  Sender: FDA-Public Use
  Company Number: US-PFIZER INC-2008038075

PATIENT
  Sex: Female

DRUGS (3)
  1. CHANTIX [Suspect]
  2. IMPLANON [Suspect]
     Dates: end: 20080620
  3. METHADONE HCL [Concomitant]
     Dates: start: 20080720

REACTIONS (2)
  - CRYING [None]
  - DEPRESSION [None]
